FAERS Safety Report 4548466-0 (Version None)
Quarter: 2004Q4

REPORT INFORMATION
  Report Type: 
  Country: None (occurrence: None)
  Receive Date: 20041227
  Receipt Date: 20041101
  Transmission Date: 20050328
  Serious: No
  Sender: FDA-Public Use
  Company Number: 04P-163-0279491-00

PATIENT
  Age: 79 Year
  Sex: Female
  Weight: 55.3388 kg

DRUGS (13)
  1. HUMIRA [Suspect]
     Indication: RHEUMATOID ARTHRITIS
     Dosage: 40 MG, 1 IN 2 WK, SUBCUTANEOUS
     Route: 058
     Dates: start: 20040601
  2. PAROXETINE HYDROCHLORIDE [Concomitant]
  3. LOMOTIL [Concomitant]
  4. FOLIC ACID [Concomitant]
  5. METHOTREXATE [Concomitant]
  6. CALCITONIN-SALMON [Concomitant]
  7. FUROSEMIDE [Concomitant]
  8. ALLOPURINOL [Concomitant]
  9. HYDROXYCHLOROQUINE PHOSPHATE [Concomitant]
  10. SULTOPRIDE [Concomitant]
  11. ATORVASTATIN [Concomitant]
  12. MULTIVITAMIN [Concomitant]
  13. ASPIRIN [Concomitant]

REACTIONS (1)
  - SYNCOPE [None]
